FAERS Safety Report 9603465 (Version 1)
Quarter: 2013Q4

REPORT INFORMATION
  Report Type: Spontaneous
  Country: FR (occurrence: FR)
  Receive Date: 20131007
  Receipt Date: 20131007
  Transmission Date: 20140711
  Serious: Yes (Death, Hospitalization)
  Sender: FDA-Public Use
  Company Number: FR-BRISTOL-MYERS SQUIBB COMPANY-19456136

PATIENT
  Age: 83 Year
  Sex: Female

DRUGS (6)
  1. HYDREA CAPS 500 MG [Suspect]
     Indication: MYELOPROLIFERATIVE DISORDER
     Dosage: 1 DF: 2 CAPSULES ON EVEN DAYS, 3 CAPSULES ON ODD DAYS
     Route: 048
     Dates: start: 20120121
  2. CALDINE [Concomitant]
     Dates: start: 20120121
  3. TRANSIPEG [Concomitant]
     Dates: start: 20120121
  4. DOLIPRANE [Concomitant]
     Dates: start: 20120125
  5. ROCEPHINE [Concomitant]
     Dates: start: 20120121
  6. GLUCOSE 5% [Concomitant]
     Dates: start: 20120121

REACTIONS (3)
  - Lung infection [Fatal]
  - Renal failure acute [Fatal]
  - Hypertensive cardiomyopathy [Fatal]
